FAERS Safety Report 5781091-2 (Version None)
Quarter: 2008Q2

REPORT INFORMATION
  Report Type: 
  Country: None (occurrence: None)
  Receive Date: 20080620
  Receipt Date: 20080609
  Transmission Date: 20081010
  Serious: Yes (Other)
  Sender: FDA-Public Use
  Company Number: GR-PFIZER INC-2008049888

PATIENT
  Sex: Female

DRUGS (1)
  1. LYRICA [Suspect]
     Indication: NEURALGIA
     Route: 048

REACTIONS (5)
  - FATIGUE [None]
  - GAIT DISTURBANCE [None]
  - MYELOPATHY [None]
  - PARAESTHESIA [None]
  - VISUAL DISTURBANCE [None]
